FAERS Safety Report 8547885-5 (Version None)
Quarter: 2012Q3

REPORT INFORMATION
  Report Type: 
  Country: None (occurrence: None)
  Receive Date: 20120728
  Receipt Date: 20120723
  Transmission Date: 20120928
  Serious: Yes (Disabling, Other)
  Sender: FDA-Public Use
  Company Number: US-009507513-1203USA03349

PATIENT

DRUGS (4)
  1. FOSAMAX [Suspect]
     Indication: OSTEOPOROSIS
     Dosage: 10 MG, UNK
     Route: 048
     Dates: start: 19950101
  2. FOSAMAX [Suspect]
     Indication: OSTEOPENIA
     Dosage: 70 MG, UNK
     Route: 048
     Dates: end: 20080701
  3. CALCIUM D (CALCIUM CARBONATE (+) CHOLECALCIFEROL) [Suspect]
     Dosage: UNK, QD
     Dates: start: 19970101
  4. VITAMINS (UNSPECIFIED) [Suspect]
     Dosage: UNK, QD
     Dates: start: 19970101

REACTIONS (6)
  - STRESS FRACTURE [None]
  - LOW TURNOVER OSTEOPATHY [None]
  - BREAST CANCER [None]
  - BLOOD CHOLESTEROL INCREASED [None]
  - FEMUR FRACTURE [None]
  - OSTEOPOROSIS [None]
